FAERS Safety Report 14512667 (Version 1)
Quarter: 2018Q1

REPORT INFORMATION
  Report Type: Spontaneous
  Country: CN (occurrence: CN)
  Receive Date: 20180209
  Receipt Date: 20180209
  Transmission Date: 20180509
  Serious: Yes (Other)
  Sender: FDA-Public Use
  Company Number: CN-ELI_LILLY_AND_COMPANY-CN201802000372

PATIENT
  Age: 44 Year
  Sex: Female
  Weight: 44 kg

DRUGS (4)
  1. SODIUM CHLORIDE. [Concomitant]
     Active Substance: SODIUM CHLORIDE
     Indication: PRODUCT USED FOR UNKNOWN INDICATION
     Dosage: 100 ML, DAILY
     Route: 042
     Dates: start: 20171018, end: 20171018
  2. GEMZAR [Suspect]
     Active Substance: GEMCITABINE HYDROCHLORIDE
     Indication: BREAST CANCER
     Dosage: 1.35 G, DAILY
     Route: 042
     Dates: start: 20171018, end: 20171018
  3. SODIUM CHLORIDE. [Concomitant]
     Active Substance: SODIUM CHLORIDE
     Dosage: 500 MG, DAILY
     Route: 042
     Dates: start: 20171018, end: 20171018
  4. NEDAPLATIN [Suspect]
     Active Substance: NEDAPLATIN
     Indication: BREAST CANCER
     Dosage: 135 MG, DAILY
     Route: 042
     Dates: start: 20171018, end: 20171018

REACTIONS (5)
  - Pruritus [Recovering/Resolving]
  - Nausea [Recovering/Resolving]
  - Rash [Recovering/Resolving]
  - Vomiting [Recovering/Resolving]
  - Off label use [Unknown]

NARRATIVE: CASE EVENT DATE: 20171018
